FAERS Safety Report 9620241 (Version 2)
Quarter: 2013Q4

REPORT INFORMATION
  Report Type: Spontaneous
  Country: US (occurrence: US)
  Receive Date: 20131014
  Receipt Date: 20131014
  Transmission Date: 20140711
  Serious: No
  Sender: FDA-Public Use
  Company Number: US-ALLERGAN-1310279US

PATIENT
  Age: 75 Year
  Sex: Female

DRUGS (1)
  1. ALPHAGAN P [Suspect]
     Indication: OCULAR HYPERTENSION
     Dosage: 2 GTT, BID
     Route: 047
     Dates: start: 201304, end: 20130709

REACTIONS (10)
  - Skin exfoliation [Unknown]
  - Foreign body in eye [Unknown]
  - Scleral hyperaemia [Unknown]
  - Reaction to preservatives [Unknown]
  - Inappropriate schedule of drug administration [Unknown]
  - Lacrimation increased [Recovering/Resolving]
  - Eye irritation [Unknown]
  - Dizziness [Unknown]
  - Eye irritation [Unknown]
  - Eyelid skin dryness [Unknown]
